FAERS Safety Report 24701695 (Version 2)
Quarter: 2024Q4

REPORT INFORMATION
  Report Type: Spontaneous
  Country: FR (occurrence: FR)
  Receive Date: 20241205
  Receipt Date: 20241213
  Transmission Date: 20250115
  Serious: Yes (Hospitalization, Other)
  Sender: SANOFI AVENTIS
  Company Number: None

PATIENT
  Age: 62 Year
  Sex: Female
  Weight: 68 kg

DRUGS (11)
  1. KARDEGIC [Suspect]
     Active Substance: ASPIRIN DL-LYSINE
     Indication: Cardiac ventricular thrombosis
     Dosage: 75 MG POWDER FOR ORAL SOLUTION IN SINGLE-DOSE SACHETS
     Route: 048
     Dates: start: 20240626, end: 20240627
  2. LOVENOX [Suspect]
     Active Substance: ENOXAPARIN SODIUM
     Indication: Cardiac ventricular thrombosis
     Dosage: 7000 IU, Q12H
     Route: 058
     Dates: start: 20240626, end: 20240627
  3. DAPAGLIFLOZIN [Concomitant]
     Active Substance: DAPAGLIFLOZIN
     Indication: Cardiac failure
     Dosage: 10 MG, QD
     Route: 048
     Dates: start: 20240626, end: 20240627
  4. ENTRESTO [Concomitant]
     Active Substance: SACUBITRIL\VALSARTAN
     Indication: Cardiac failure
     Dosage: 49 MG/51 MG
     Route: 048
     Dates: start: 20240626, end: 20240627
  5. EPLERENONE [Concomitant]
     Active Substance: EPLERENONE
     Indication: Ischaemic cardiomyopathy
     Dosage: 25 MG, QD
     Route: 048
     Dates: start: 20240626, end: 20240627
  6. FUROSEMIDE [Concomitant]
     Active Substance: FUROSEMIDE
     Indication: Ischaemic cardiomyopathy
     Dosage: 40 MG, Q8H
     Route: 048
     Dates: start: 20240626, end: 20240627
  7. BISOPROLOL FUMARATE [Concomitant]
     Active Substance: BISOPROLOL FUMARATE
     Indication: Cardiac failure
     Dosage: 1.25 MG, QD
     Route: 048
     Dates: start: 20240626, end: 20240627
  8. ALDACTONE [Concomitant]
     Active Substance: SPIRONOLACTONE
     Indication: Cardiac failure
     Dosage: 25.000MG QD
     Route: 048
     Dates: start: 20240626, end: 20240627
  9. POTASSIUM CHLORIDE [Concomitant]
     Active Substance: POTASSIUM CHLORIDE
     Indication: Hypokalaemia
     Dosage: 2 DF, Q8H
     Route: 048
     Dates: start: 20240626, end: 20240627
  10. PANTOPRAZOLE SODIUM [Concomitant]
     Active Substance: PANTOPRAZOLE SODIUM
     Indication: Gastrooesophageal variceal haemorrhage prophylaxis
     Dosage: 40 MG, QD
     Route: 048
     Dates: start: 20240626
  11. EZETIMIBE\ROSUVASTATIN [Concomitant]
     Active Substance: EZETIMIBE\ROSUVASTATIN
     Indication: Dyslipidaemia
     Dosage: 20 MG/10 MG, CAPSULE
     Route: 048
     Dates: start: 20240627

REACTIONS (3)
  - Shock haemorrhagic [Recovered/Resolved]
  - Peritoneal haematoma [Recovered/Resolved]
  - Drug interaction [Recovered/Resolved]

NARRATIVE: CASE EVENT DATE: 20240627
